FAERS Safety Report 10165887 (Version 2)
Quarter: 2014Q2

REPORT INFORMATION
  Report Type: Spontaneous
  Country: US (occurrence: US)
  Receive Date: 20140510
  Receipt Date: 20140510
  Transmission Date: 20141212
  Serious: No
  Sender: FDA-Public Use
  Company Number: US-BRISTOL-MYERS SQUIBB COMPANY-19964683

PATIENT
  Age: 60 Year
  Sex: Female
  Weight: 113.38 kg

DRUGS (3)
  1. BYDUREON [Suspect]
     Route: 058
  2. INVOKANA [Concomitant]
  3. METFORMIN [Concomitant]

REACTIONS (3)
  - Influenza [Unknown]
  - Chills [Unknown]
  - Neck pain [Unknown]
